FAERS Safety Report 5975640-9 (Version None)
Quarter: 2008Q4

REPORT INFORMATION
  Report Type: 
  Country: None (occurrence: None)
  Receive Date: 20081128
  Receipt Date: 20081118
  Transmission Date: 20090506
  Serious: Yes (Hospitalization)
  Sender: FDA-Public Use
  Company Number: US025068

PATIENT
  Age: 56 Year
  Sex: Female
  Weight: 190 kg

DRUGS (4)
  1. MODAFANIL [Suspect]
     Indication: DRUG DEPENDENCE
     Dosage: 400 MG DAILY ORAL
     Route: 048
     Dates: start: 20080716, end: 20081007
  2. SEROQUEL [Suspect]
     Indication: SLEEP DISORDER
     Dosage: 25 MG ONCE ORAL
     Route: 048
     Dates: start: 20081031, end: 20081101
  3. XANAX [Suspect]
  4. DILAUDID [Suspect]

REACTIONS (4)
  - BUNDLE BRANCH BLOCK RIGHT [None]
  - MULTIPLE DRUG OVERDOSE INTENTIONAL [None]
  - SOMNOLENCE [None]
  - SUICIDE ATTEMPT [None]
